FAERS Safety Report 7759293-5 (Version None)
Quarter: 2011Q3

REPORT INFORMATION
  Report Type: 
  Country: None (occurrence: None)
  Receive Date: 20110919
  Receipt Date: 20110912
  Transmission Date: 20111222
  Serious: Yes (Hospitalization)
  Sender: FDA-Public Use
  Company Number: JP-PFIZER INC-2011214148

PATIENT
  Age: 82 Year
  Sex: Male

DRUGS (4)
  1. METHYLPREDNISOLONE SODIUM SUCCINATE [Suspect]
     Indication: BRONCHOSPASM
     Dosage: 4250 MG, UNK
  2. VECURONIUM BROMIDE [Suspect]
     Dosage: 776 MG, UNK
  3. HYDROCORTISONE SODIUM SUCCINATE [Suspect]
     Indication: BRONCHOSPASM
     Dosage: 1250 MG, UNK
  4. MEROPENEM TRIHYDRATE [Concomitant]
     Indication: PNEUMONIA
     Dosage: 0.5 G, 1X/DAY

REACTIONS (4)
  - QUADRIPLEGIA [None]
  - RESPIRATORY PARALYSIS [None]
  - RHABDOMYOLYSIS [None]
  - MYOPATHY [None]
